FAERS Safety Report 13999299 (Version 2)
Quarter: 2018Q2

REPORT INFORMATION
  Report Type: Spontaneous
  Country: SG (occurrence: SG)
  Receive Date: 20170922
  Receipt Date: 20180619
  Transmission Date: 20180711
  Serious: Yes (Hospitalization, Other)
  Sender: FDA-Public Use
  Company Number: SG-LUPIN PHARMACEUTICALS INC.-2017-03904

PATIENT
  Age: 90 Year
  Sex: Male

DRUGS (2)
  1. OMEPRAZOLE. [Suspect]
     Active Substance: OMEPRAZOLE
     Indication: GASTRIC ULCER
     Dosage: 40 MG, QD
     Route: 065
     Dates: start: 200904
  2. OMEPRAZOLE. [Suspect]
     Active Substance: OMEPRAZOLE
     Indication: GASTRIC ULCER

REACTIONS (2)
  - Hypomagnesaemia [Recovered/Resolved]
  - Hypokalaemia [Recovered/Resolved]
